FAERS Safety Report 13242194 (Version 1)
Quarter: 2017Q1

REPORT INFORMATION
  Report Type: Spontaneous
  Country: US (occurrence: US)
  Receive Date: 20170216
  Receipt Date: 20170216
  Transmission Date: 20170428
  Serious: No
  Sender: FDA-Public Use
  Company Number: US-RELYPSA-RLY2017000102

PATIENT
  Age: 63 Year
  Sex: Female

DRUGS (18)
  1. ASPIRIN. [Concomitant]
     Active Substance: ASPIRIN
  2. BONIVA [Concomitant]
     Active Substance: IBANDRONATE SODIUM
  3. VELTASSA [Suspect]
     Active Substance: PATIROMER
     Indication: HYPERKALAEMIA
     Dosage: 8.4 G, QD
     Route: 048
     Dates: start: 20160413
  4. DAPSONE. [Concomitant]
     Active Substance: DAPSONE
  5. MULTIVITAMIN [Concomitant]
     Active Substance: VITAMINS
  6. FOSAMAX [Concomitant]
     Active Substance: ALENDRONATE SODIUM
  7. NOVOLIN N [Concomitant]
     Active Substance: INSULIN HUMAN
  8. COREG [Concomitant]
     Active Substance: CARVEDILOL
  9. FAMOTIDINE. [Concomitant]
     Active Substance: FAMOTIDINE
  10. LASIX [Concomitant]
     Active Substance: FUROSEMIDE
  11. PROCRIT [Concomitant]
     Active Substance: ERYTHROPOIETIN
  12. VELTASSA [Suspect]
     Active Substance: PATIROMER
     Dosage: 8.4 G, 3 TIMES A WEEK
     Route: 048
  13. XANAX [Concomitant]
     Active Substance: ALPRAZOLAM
  14. LIPITOR [Concomitant]
     Active Substance: ATORVASTATIN CALCIUM
  15. TACROLIMUS. [Concomitant]
     Active Substance: TACROLIMUS
  16. SYNTHROID [Concomitant]
     Active Substance: LEVOTHYROXINE SODIUM
  17. PREDNISONE. [Concomitant]
     Active Substance: PREDNISONE
  18. MYCOPHENOLIC ACID. [Concomitant]
     Active Substance: MYCOPHENOLIC ACID

REACTIONS (3)
  - Abdominal distension [Unknown]
  - Diarrhoea [Unknown]
  - Inappropriate schedule of drug administration [Not Recovered/Not Resolved]

NARRATIVE: CASE EVENT DATE: 201604
